FAERS Safety Report 10186171 (Version 1)
Quarter: 2014Q2

REPORT INFORMATION
  Report Type: Report from Study
  Country: DE (occurrence: DE)
  Receive Date: 20140521
  Receipt Date: 20140521
  Transmission Date: 20141212
  Serious: Yes (Other)
  Sender: FDA-Public Use
  Company Number: DE-INCYTE CORPORATION-2014IN001277

PATIENT
  Sex: Male
  Weight: 78.8 kg

DRUGS (8)
  1. INCB018424 [Suspect]
     Indication: MYELOFIBROSIS
     Dosage: 2 DF, PER DAY
     Route: 048
     Dates: start: 20130527, end: 20130911
  2. INCB018424 [Suspect]
     Dosage: 15 MG, PER DAY
     Route: 048
     Dates: start: 20130911, end: 20131009
  3. INCB018424 [Suspect]
     Dosage: 15 MG, PER DAY
     Route: 048
     Dates: start: 20131017
  4. CO-DIOVAN [Concomitant]
     Indication: HYPERTENSION
     Dosage: UNK
     Dates: start: 20090715
  5. ERYTHROPOIETIN [Concomitant]
     Dosage: UNK DF, UNK
     Dates: start: 20130522
  6. RAMILICH [Concomitant]
     Dosage: UNK
     Dates: start: 2009
  7. BISOHEXAL [Concomitant]
     Indication: HYPERTENSION
     Dosage: UNK
     Dates: start: 20090715
  8. ALLOBETA [Concomitant]
     Dosage: UNK
     Dates: start: 2010

REACTIONS (1)
  - Gamma-glutamyltransferase increased [Unknown]
